FAERS Safety Report 4488738-1 (Version None)
Quarter: 2004Q4

REPORT INFORMATION
  Report Type: 
  Country: None (occurrence: None)
  Receive Date: 20041025
  Receipt Date: 20041014
  Transmission Date: 20050328
  Serious: Yes (Other)
  Sender: FDA-Public Use
  Company Number: 2004079275

PATIENT
  Age: 27 Year
  Sex: Male

DRUGS (2)
  1. CEFOPERAZONE/SULBACTAM (CEFOPERAZONE, SULBACTAM) [Suspect]
     Indication: ILL-DEFINED DISORDER
     Dosage: INTRAVENOUS
     Route: 042
  2. TETRACAINE HYDROCHLORIDE (TETRACAINE HYDROCHLORIDE) [Concomitant]

REACTIONS (10)
  - AMNESIA [None]
  - ANAPHYLACTIC SHOCK [None]
  - BLOOD PRESSURE SYSTOLIC DECREASED [None]
  - FEELING ABNORMAL [None]
  - HEART RATE DECREASED [None]
  - HYPOXIA [None]
  - LYMPHOCYTE STIMULATION TEST POSITIVE [None]
  - SUFFOCATION FEELING [None]
  - THERAPY NON-RESPONDER [None]
  - VENTRICULAR TACHYCARDIA [None]
